FAERS Safety Report 6611032-7 (Version None)
Quarter: 2010Q1

REPORT INFORMATION
  Report Type: 
  Country: None (occurrence: None)
  Receive Date: 20100222
  Receipt Date: 20100208
  Transmission Date: 20100710
  Serious: Yes (Hospitalization)
  Sender: FDA-Public Use
  Company Number: 008817

PATIENT
  Age: 85 Year
  Sex: Male

DRUGS (2)
  1. PLETAL [Suspect]
     Dosage: 50 MG, QD ORAL; 100 MG, QD; ORAL
     Route: 048
     Dates: start: 20091218, end: 20100117
  2. PLETAL [Suspect]
     Dosage: 50 MG, QD ORAL; 100 MG, QD; ORAL
     Route: 048
     Dates: start: 20100118, end: 20100128

REACTIONS (2)
  - GRANULOCYTE COUNT DECREASED [None]
  - WHITE BLOOD CELL COUNT DECREASED [None]
